FAERS Safety Report 8643006 (Version 2)
Quarter: 2013Q2

REPORT INFORMATION
  Report Type: Spontaneous
  Country: US (occurrence: US)
  Receive Date: 20120629
  Receipt Date: 20130617
  Transmission Date: 20140414
  Serious: Yes (Hospitalization, Disabling)
  Sender: FDA-Public Use
  Company Number: US-ASTRAZENECA-2012SE34661

PATIENT
  Age: 33 Year
  Sex: Female

DRUGS (13)
  1. NEXIUM [Suspect]
     Indication: GASTROOESOPHAGEAL REFLUX DISEASE
     Route: 048
     Dates: start: 1994, end: 2009
  2. NEXIUM [Suspect]
     Indication: DYSPEPSIA
     Route: 048
     Dates: start: 1994, end: 2009
  3. PRILOSEC [Suspect]
     Route: 048
  4. DEXILANT [Concomitant]
     Indication: GASTROOESOPHAGEAL REFLUX DISEASE
  5. ZANTAC [Concomitant]
     Dosage: AS NEEDED
  6. PEPCID [Concomitant]
     Dosage: AS NEEDED
  7. TUMS [Concomitant]
     Dosage: AS NEEDED
  8. GAS X [Concomitant]
     Dosage: AS NEEDED
  9. ALKA SELZER [Concomitant]
  10. PEPTO BISMOL [Concomitant]
  11. ROLAIDS [Concomitant]
  12. FLEXERIL [Concomitant]
     Indication: MYALGIA
  13. IBUPROFEN [Concomitant]

REACTIONS (11)
  - Meniscus injury [Unknown]
  - Arthropathy [Unknown]
  - Large intestine perforation [Unknown]
  - Arthralgia [Unknown]
  - Osteoporosis [Unknown]
  - Multiple fractures [Unknown]
  - Osteoarthritis [Unknown]
  - Neck pain [Unknown]
  - Arthritis [Unknown]
  - Pain [Unknown]
  - Arthralgia [Unknown]
